FAERS Safety Report 8933123 (Version 1)
Quarter: 2012Q4

REPORT INFORMATION
  Report Type: 
  Country: FR (occurrence: FR)
  Receive Date: 20121128
  Receipt Date: 20121128
  Transmission Date: 20130627
  Serious: Yes (Death)
  Sender: FDA-Public Use
  Company Number: FR-EISAI INC-E3810-06090-SPO-FR

PATIENT
  Age: 72 Year
  Sex: Male

DRUGS (11)
  1. PARIET (RABEPRAZOLE) [Suspect]
     Route: 048
     Dates: start: 20120810, end: 20120818
  2. TIAPRIDAL [Suspect]
     Route: 048
     Dates: start: 20120816, end: 201208
  3. CITALOPRAM [Suspect]
     Route: 048
     Dates: start: 20120814, end: 201208
  4. TOPALGIC [Suspect]
     Route: 048
     Dates: start: 20120814, end: 201208
  5. IXPRIM [Suspect]
     Route: 048
     Dates: start: 20120816, end: 201208
  6. BISOCE [Concomitant]
  7. AMIODARONE [Concomitant]
  8. TRIATEC [Concomitant]
  9. KAYEXALATE [Concomitant]
  10. VITAMINE B1 B6 [Concomitant]
  11. BURINEX [Concomitant]

REACTIONS (1)
  - Neutropenia [Fatal]
